FAERS Safety Report 6264447-3 (Version None)
Quarter: 2009Q3

REPORT INFORMATION
  Report Type: 
  Country: None (occurrence: None)
  Receive Date: 20090710
  Receipt Date: 20090630
  Transmission Date: 20100115
  Serious: Yes (Other)
  Sender: FDA-Public Use
  Company Number: US-MERCK-0907USA01211

PATIENT
  Age: 61 Year
  Sex: Female

DRUGS (4)
  1. ZOLINZA [Suspect]
     Indication: MYCOSIS FUNGOIDES
     Route: 048
  2. ZOLINZA [Suspect]
     Route: 048
  3. INTERFERON GAMMA [Suspect]
     Indication: SKIN PLAQUE
     Route: 065
  4. INTERFERON GAMMA [Suspect]
     Route: 065

REACTIONS (6)
  - BONE MARROW FAILURE [None]
  - DEHYDRATION [None]
  - DIARRHOEA [None]
  - NAUSEA [None]
  - THROMBOCYTOPENIA [None]
  - VOMITING [None]
